FAERS Safety Report 22172590 (Version 1)
Quarter: 2023Q2

REPORT INFORMATION
  Report Type: Spontaneous
  Country: JP (occurrence: JP)
  Receive Date: 20230404
  Receipt Date: 20230404
  Transmission Date: 20230722
  Serious: Yes (Death)
  Sender: FDA-Public Use
  Company Number: JP-PFIZER INC-PV202300061318

PATIENT

DRUGS (1)
  1. ZYVOX [Suspect]
     Active Substance: LINEZOLID
     Route: 041

REACTIONS (1)
  - Platelet count decreased [Fatal]
